FAERS Safety Report 4378365-9 (Version None)
Quarter: 2004Q2

REPORT INFORMATION
  Report Type: 
  Country: None (occurrence: None)
  Receive Date: 20040616
  Receipt Date: 20040511
  Transmission Date: 20050107
  Serious: Yes (Life-Threatening, Hospitalization, Other)
  Sender: FDA-Public Use
  Company Number: PHBS2004JP06292

PATIENT
  Age: 68 Year
  Sex: Male

DRUGS (8)
  1. GLEEVEC [Suspect]
     Indication: CHRONIC MYELOID LEUKAEMIA
     Dosage: 400 MG/DAY
     Route: 048
     Dates: start: 20040408, end: 20040422
  2. GLEEVEC [Suspect]
     Dosage: 400 MG/D
     Route: 048
     Dates: start: 20011218
  3. GLEEVEC [Suspect]
     Dosage: 300 MG/D
     Route: 048
     Dates: start: 20020109
  4. GLEEVEC [Suspect]
     Dosage: 200 MG/D
     Route: 048
     Dates: start: 20030506
  5. GLEEVEC [Suspect]
     Dosage: 300 MG, Q48H
     Route: 048
     Dates: start: 20030722
  6. GLEEVEC [Suspect]
     Dosage: 200 MG, Q48H
     Route: 048
     Dates: start: 20030723
  7. NONI JUICE [Suspect]
  8. ZANTAC [Suspect]
     Dosage: 150 MG/D
     Route: 048
     Dates: start: 20040422, end: 20040422

REACTIONS (14)
  - CARDIAC FAILURE ACUTE [None]
  - CEREBRAL INFARCTION [None]
  - COMA [None]
  - DEPRESSED LEVEL OF CONSCIOUSNESS [None]
  - DIABETIC KETOACIDOSIS [None]
  - DIARRHOEA [None]
  - DIZZINESS [None]
  - DRUG INTERACTION [None]
  - DYSPNOEA [None]
  - EYELID OEDEMA [None]
  - GASTRIC DISORDER [None]
  - HEMIPLEGIA [None]
  - HYPOXIA [None]
  - WHITE BLOOD CELL COUNT DECREASED [None]
